FAERS Safety Report 16654475 (Version 1)
Quarter: 2019Q3

REPORT INFORMATION
  Report Type: Spontaneous
  Country: AR (occurrence: AR)
  Receive Date: 20190731
  Receipt Date: 20190731
  Transmission Date: 20191004
  Serious: Yes (Other)
  Sender: FDA-Public Use
  Company Number: AR-AMGEN-ARGSP2019121755

PATIENT
  Age: 68 Year
  Sex: Female

DRUGS (1)
  1. ENBREL [Suspect]
     Active Substance: ETANERCEPT
     Indication: RHEUMATOID ARTHRITIS
     Dosage: 50 MILLIGRAM, QWK
     Route: 065
     Dates: start: 20110720

REACTIONS (5)
  - Memory impairment [Recovering/Resolving]
  - Vascular occlusion [Recovering/Resolving]
  - Tinnitus [Recovering/Resolving]
  - Cerebrovascular accident [Recovering/Resolving]
  - Cerebral ischaemia [Recovering/Resolving]
